FAERS Safety Report 5315952-5 (Version None)
Quarter: 2007Q2

REPORT INFORMATION
  Report Type: 
  Country: None (occurrence: None)
  Receive Date: 20070503
  Receipt Date: 20070419
  Transmission Date: 20071010
  Serious: Yes (Life-Threatening)
  Sender: FDA-Public Use
  Company Number: JP-ROCHE-487884

PATIENT
  Age: 8 Year
  Sex: Female

DRUGS (1)
  1. TAMIFLU [Suspect]
     Route: 048
     Dates: start: 20070303, end: 20070303

REACTIONS (3)
  - DEPRESSED LEVEL OF CONSCIOUSNESS [None]
  - GRAND MAL CONVULSION [None]
  - VOMITING [None]
